FAERS Safety Report 6323945-4 (Version None)
Quarter: 2009Q3

REPORT INFORMATION
  Report Type: 
  Country: None (occurrence: None)
  Receive Date: 20090824
  Receipt Date: 20090817
  Transmission Date: 20100115
  Serious: Yes (Other)
  Sender: FDA-Public Use
  Company Number: A0800446A

PATIENT
  Age: 60 Year
  Sex: Female
  Weight: 75 kg

DRUGS (3)
  1. VALTREX [Suspect]
     Dosage: 2G TWICE PER DAY
     Route: 048
     Dates: start: 20090730, end: 20090730
  2. BENICAR [Concomitant]
  3. LIPITOR [Concomitant]

REACTIONS (4)
  - DIPLOPIA [None]
  - PARALYSIS [None]
  - VIRAL INFECTION [None]
  - VISION BLURRED [None]
